FAERS Safety Report 6028963-1 (Version None)
Quarter: 2009Q1

REPORT INFORMATION
  Report Type: 
  Country: None (occurrence: None)
  Receive Date: 20090106
  Receipt Date: 20081230
  Transmission Date: 20090719
  Serious: Yes (Other)
  Sender: FDA-Public Use
  Company Number: PHHY2008GB28318

PATIENT
  Sex: Female
  Weight: 86.6 kg

DRUGS (7)
  1. CLOZARIL [Suspect]
     Indication: SCHIZOPHRENIA
     Dosage: 37.5 MG/DAY
     Route: 048
     Dates: start: 20081105, end: 20081229
  2. ARIPIPRAZOLE [Concomitant]
     Indication: SCHIZOPHRENIA
     Dosage: 15 MG/DAY
     Route: 048
  3. DIAZEPAM [Concomitant]
     Indication: ANXIETY
     Dosage: 5 MG, QHS
     Route: 048
     Dates: start: 20081027, end: 20081110
  4. DIAZEPAM [Concomitant]
     Indication: SCHIZOPHRENIA
  5. ORPHENADRINE CITRATE [Concomitant]
     Indication: PARKINSON'S DISEASE
     Dosage: 150 MG/DAY
     Route: 048
  6. IMIPRAMINE [Concomitant]
     Indication: DEPRESSION
     Dosage: 100 MG/DAY
     Route: 048
  7. IMIPRAMINE [Concomitant]
     Indication: SCHIZOPHRENIA

REACTIONS (2)
  - MOBILITY DECREASED [None]
  - OEDEMA PERIPHERAL [None]
